FAERS Safety Report 6856557-4 (Version None)
Quarter: 2010Q3

REPORT INFORMATION
  Report Type: 
  Country: None (occurrence: None)
  Receive Date: 20100719
  Receipt Date: 20100712
  Transmission Date: 20110219
  Serious: Yes (Hospitalization)
  Sender: FDA-Public Use
  Company Number: FR-ROCHE-714937

PATIENT
  Sex: Male
  Weight: 75 kg

DRUGS (4)
  1. PEGINTERFERON ALFA-2A [Suspect]
     Indication: HEPATITIS C
     Dosage: FORM: INJECTION
     Route: 058
     Dates: start: 20081202, end: 20090901
  2. PEGINTERFERON ALFA-2A [Suspect]
     Dosage: REINTRODUCED
     Route: 058
     Dates: start: 20091201
  3. RIBAVIRIN [Suspect]
     Indication: HEPATITIS C
     Route: 048
     Dates: start: 20081202, end: 20090901
  4. RIBAVIRIN [Suspect]
     Dosage: REINTRODUCED
     Route: 048
     Dates: start: 20091201

REACTIONS (2)
  - FACE INJURY [None]
  - PULMONARY ARTERIAL HYPERTENSION [None]
